FAERS Safety Report 18560328 (Version 3)
Quarter: 2023Q1

REPORT INFORMATION
  Report Type: Spontaneous
  Country: PL (occurrence: PL)
  Receive Date: 20201130
  Receipt Date: 20230130
  Transmission Date: 20230418
  Serious: Yes (Other)
  Sender: FDA-Public Use
  Company Number: None

PATIENT
  Age: 47 Year
  Sex: Female

DRUGS (14)
  1. LAPATINIB [Suspect]
     Active Substance: LAPATINIB
     Indication: Invasive ductal breast carcinoma
     Dosage: UNK
     Route: 065
  2. VINORELBINE [Suspect]
     Active Substance: VINORELBINE TARTRATE
     Indication: Invasive ductal breast carcinoma
     Dosage: UNK (4 CYCLES)
     Route: 048
  3. PACLITAXEL [Suspect]
     Active Substance: PACLITAXEL
     Indication: Invasive ductal breast carcinoma
     Dosage: UNK (3 ADMINISTRATIONS)
     Route: 065
     Dates: start: 20140117
  4. PACLITAXEL [Suspect]
     Active Substance: PACLITAXEL
     Dosage: UNK (10 CYCLES WITH TRASTUZUMAB)
     Route: 065
     Dates: start: 20140211
  5. PACLITAXEL [Suspect]
     Active Substance: PACLITAXEL
     Dosage: UNK (1,8,15 REGIME EVERY 28 DAYS)
     Route: 065
     Dates: start: 20191023, end: 201911
  6. GEMCITABINE [Suspect]
     Active Substance: GEMCITABINE
     Indication: Invasive ductal breast carcinoma
     Dosage: UNK (6 CYCLES)
     Route: 065
     Dates: start: 20190515
  7. METHOTREXATE [Suspect]
     Active Substance: METHOTREXATE
     Indication: Invasive ductal breast carcinoma
     Dosage: UNK
     Route: 065
     Dates: start: 201801
  8. CARBOPLATIN [Suspect]
     Active Substance: CARBOPLATIN
     Indication: Invasive ductal breast carcinoma
     Dosage: UNK (EVERY 7 DAYS, 12 CYCLES)
     Route: 065
     Dates: start: 20171023
  9. CAPECITABINE [Suspect]
     Active Substance: CAPECITABINE
     Indication: Invasive ductal breast carcinoma
     Dosage: UNK (19 CYCLES)
     Route: 065
     Dates: start: 20160405, end: 20170420
  10. TRASTUZUMAB [Suspect]
     Active Substance: TRASTUZUMAB
     Indication: Invasive ductal breast carcinoma
     Dosage: UNK (10 CYCLES WITH PXL) (FORMULATION WAS INFUSION, SOLUTION)
     Route: 065
     Dates: start: 20140211
  11. TRASTUZUMAB [Suspect]
     Active Substance: TRASTUZUMAB
     Dosage: UNK (37 CYCLES)
     Route: 065
     Dates: start: 20160329
  12. CYCLOPHOSPHAMIDE [Suspect]
     Active Substance: CYCLOPHOSPHAMIDE
     Indication: Invasive ductal breast carcinoma
     Dosage: UNK
     Route: 065
     Dates: start: 201801
  13. KADCYLA [Suspect]
     Active Substance: ADO-TRASTUZUMAB EMTANSINE
     Indication: Invasive ductal breast carcinoma
     Dosage: UNK (17 CYCLES RECEIVED)
     Route: 042
     Dates: start: 20191105
  14. KADCYLA [Suspect]
     Active Substance: ADO-TRASTUZUMAB EMTANSINE
     Dosage: 230 MG/KG (AT THE TIME OF THE EVENTS)
     Route: 042

REACTIONS (15)
  - Gastric neoplasm [Unknown]
  - Hepatotoxicity [Unknown]
  - Computerised tomogram thorax abnormal [Unknown]
  - Soft tissue disorder [Unknown]
  - Herpes zoster [Unknown]
  - Breast disorder [Unknown]
  - Neck pain [Unknown]
  - Temporomandibular joint syndrome [Unknown]
  - Dizziness [Unknown]
  - Blood pressure increased [Recovering/Resolving]
  - Asthenia [Unknown]
  - Oropharyngeal pain [Unknown]
  - Depressed mood [Unknown]
  - Pain [Recovered/Resolved]
  - Dysphagia [Unknown]

NARRATIVE: CASE EVENT DATE: 20171201
